FAERS Safety Report 8861723 (Version 1)
Quarter: 2012Q4

REPORT INFORMATION
  Report Type: 
  Country: US (occurrence: US)
  Receive Date: 20121025
  Receipt Date: 20121025
  Transmission Date: 20130627
  Serious: No
  Sender: FDA-Public Use
  Company Number: US-AMGEN-USASP2012020353

PATIENT
  Age: 52 Year
  Sex: Female

DRUGS (2)
  1. ENBREL [Suspect]
     Indication: RHEUMATOID ARTHRITIS
     Dosage: 50 mg, qwk
     Dates: start: 19990701
  2. TREXALL [Concomitant]
     Dosage: 1 mg, qwk
     Dates: start: 1980

REACTIONS (8)
  - Knee operation [Recovered/Resolved]
  - Joint swelling [Not Recovered/Not Resolved]
  - Joint warmth [Not Recovered/Not Resolved]
  - Sluggishness [Not Recovered/Not Resolved]
  - Fatigue [Not Recovered/Not Resolved]
  - Rheumatoid arthritis [Not Recovered/Not Resolved]
  - Sinusitis [Recovered/Resolved]
  - Pyrexia [Not Recovered/Not Resolved]
